FAERS Safety Report 4347580-2 (Version None)
Quarter: 2004Q1

REPORT INFORMATION
  Report Type: 
  Country: None (occurrence: None)
  Receive Date: 20040325
  Receipt Date: 20031126
  Transmission Date: 20041129
  Serious: No
  Sender: FDA-Public Use
  Company Number: US_031299284

PATIENT
  Age: 47 Year
  Weight: 35 kg

DRUGS (1)
  1. FORTEO [Suspect]
     Indication: OSTEOPOROSIS
     Dosage: 20 UG/1 DAY
     Dates: start: 20030923, end: 20031021

REACTIONS (1)
  - BLOOD ALKALINE PHOSPHATASE INCREASED [None]
